FAERS Safety Report 19191765 (Version 1)
Quarter: 2021Q2

REPORT INFORMATION
  Report Type: Spontaneous
  Country: FR (occurrence: FR)
  Receive Date: 20210429
  Receipt Date: 20210429
  Transmission Date: 20210717
  Serious: Yes (Hospitalization)
  Sender: FDA-Public Use
  Company Number: FR-TEVA-2021-FR-1904918

PATIENT
  Age: 53 Year
  Sex: Male
  Weight: 75 kg

DRUGS (9)
  1. RAMIPRIL 10 MG [Concomitant]
     Active Substance: RAMIPRIL
     Dosage: 1 DOSAGE FORMS DAILY; 1?0?0
  2. CARVEDILOL 25 MG [Concomitant]
     Active Substance: CARVEDILOL
     Dosage: 2 DOSAGE FORMS DAILY; 1?0?1
  3. ISONIAZIDE [Suspect]
     Active Substance: ISONIAZID
     Indication: TUBERCULOSIS
     Dosage: 450 MG
     Route: 048
     Dates: start: 20210104, end: 20210330
  4. ENOXAPARIN [Concomitant]
     Active Substance: ENOXAPARIN
     Dosage: 14000 IU (INTERNATIONAL UNIT) DAILY;
  5. PIPERACILLINE TAZOBACTAM MYLAN [Suspect]
     Active Substance: PIPERACILLIN SODIUM\TAZOBACTAM SODIUM
     Indication: PNEUMONIA ASPIRATION
     Dosage: 1 DF
     Route: 040
     Dates: start: 20210321, end: 20210328
  6. LANSOPRAZOLE. [Suspect]
     Active Substance: LANSOPRAZOLE
     Indication: PRODUCT USED FOR UNKNOWN INDICATION
     Dosage: 15 MG
     Route: 048
     Dates: start: 20210320, end: 20210330
  7. ALFUZOSIN 10 MG [Concomitant]
     Active Substance: ALFUZOSIN
     Dosage: 1 DOSAGE FORMS DAILY; 0?0?1
  8. KARDEGIC  (DL?LYSINE ACETYLSALICYLATE) 75 MG [Concomitant]
     Dosage: 1 DOSAGE FORMS DAILY; 1?0?0
  9. ATORVASTATIN 40 MG [Concomitant]
     Active Substance: ATORVASTATIN
     Dosage: 1 DOSAGE FORMS DAILY; 0?0?1

REACTIONS (2)
  - Cholestasis [Recovering/Resolving]
  - Hepatic cytolysis [Recovering/Resolving]

NARRATIVE: CASE EVENT DATE: 20210323
